FAERS Safety Report 19234932 (Version 3)
Quarter: 2022Q1

REPORT INFORMATION
  Report Type: Spontaneous
  Country: US (occurrence: US)
  Receive Date: 20210509
  Receipt Date: 20220208
  Transmission Date: 20220423
  Serious: Yes (Hospitalization, Other)
  Sender: FDA-Public Use
  Company Number: US-SA-SAC20210506001072

PATIENT
  Age: 62 Year
  Sex: Female

DRUGS (1)
  1. AUBAGIO [Suspect]
     Active Substance: TERIFLUNOMIDE
     Indication: Multiple sclerosis
     Dosage: 14 MG, QD
     Route: 048
     Dates: start: 20200217

REACTIONS (13)
  - Syncope [Unknown]
  - Hot flush [Unknown]
  - Vomiting [Unknown]
  - Feeling abnormal [Unknown]
  - Hypoaesthesia [Unknown]
  - Loss of consciousness [Not Recovered/Not Resolved]
  - Haemorrhage [Not Recovered/Not Resolved]
  - Hypothyroidism [Not Recovered/Not Resolved]
  - Blood potassium decreased [Unknown]
  - Blister [Unknown]
  - Skin haemorrhage [Unknown]
  - Ocular hyperaemia [Not Recovered/Not Resolved]
  - Ear haemorrhage [Not Recovered/Not Resolved]

NARRATIVE: CASE EVENT DATE: 20210325
